FAERS Safety Report 7558233-1 (Version None)
Quarter: 2011Q2

REPORT INFORMATION
  Report Type: 
  Country: None (occurrence: None)
  Receive Date: 20110620
  Receipt Date: 20110603
  Transmission Date: 20111010
  Serious: No
  Sender: FDA-Public Use
  Company Number: US-B.I. PHARMACEUTICALS,INC./RIDGEFIELD-2011-BP-14686BP

PATIENT
  Sex: Female

DRUGS (13)
  1. AMLODIPINE [Concomitant]
     Indication: HYPERTENSION
     Dosage: 10 MG
     Route: 048
  2. DOXAZOSIN MESYLATE [Concomitant]
     Indication: HYPERTENSION
     Dosage: 8 MG
     Route: 048
  3. METFORMIN HCL [Concomitant]
     Indication: DIABETES MELLITUS
     Dosage: 2000 MG
     Route: 048
  4. LEVEMIR [Concomitant]
     Indication: DIABETES MELLITUS
     Dosage: 50 U
     Route: 058
  5. SULFASALAZINE [Concomitant]
     Indication: CROHN'S DISEASE
     Dosage: 3000 MG
     Route: 048
  6. BENICAR HCT [Concomitant]
     Indication: HYPERTENSION
     Route: 048
  7. GLYBURIDE [Concomitant]
     Indication: DIABETES MELLITUS
     Dosage: 8 MG
     Route: 048
  8. LISINOPRIL [Concomitant]
     Indication: HYPERTENSION
     Dosage: 80 MG
     Route: 048
  9. PRADAXA [Suspect]
     Indication: ATRIAL FIBRILLATION
     Dosage: 300 MG
     Route: 048
     Dates: start: 20110517
  10. CLONIDINE [Concomitant]
     Indication: HYPERTENSION
     Dosage: 0.9 MG
     Route: 048
  11. NOVOLOG [Concomitant]
     Indication: DIABETES MELLITUS
     Route: 058
  12. PRAVASTATIN [Concomitant]
     Indication: BLOOD CHOLESTEROL INCREASED
     Dosage: 10 MG
     Route: 048
  13. KLOR-CON [Concomitant]
     Indication: PROPHYLAXIS
     Dosage: 10 MEQ
     Route: 048

REACTIONS (4)
  - DIZZINESS [None]
  - NAUSEA [None]
  - SENSORY DISTURBANCE [None]
  - FATIGUE [None]
